FAERS Safety Report 24202146 (Version 1)
Quarter: 2024Q3

REPORT INFORMATION
  Report Type: Spontaneous
  Country: US (occurrence: US)
  Receive Date: 20240812
  Receipt Date: 20240812
  Transmission Date: 20241017
  Serious: No
  Sender: SUNOVION
  Company Number: US-SUMITOMO PHARMA SWITZERLAND GMBH-2024MYSCI0700672

PATIENT

DRUGS (1)
  1. MYFEMBREE [Suspect]
     Active Substance: ESTRADIOL HEMIHYDRATE\NORETHINDRONE ACETATE\RELUGOLIX
     Indication: Uterine leiomyoma
     Dosage: STARTED TWO WEEKS AGO , ONCE DAILY
     Route: 048
     Dates: start: 2024

REACTIONS (3)
  - Uterine pain [Unknown]
  - Adnexa uteri pain [Unknown]
  - Heavy menstrual bleeding [Unknown]
